FAERS Safety Report 10383619 (Version 2)
Quarter: 2014Q4

REPORT INFORMATION
  Report Type: Other
  Country: GB (occurrence: GB)
  Receive Date: 20140814
  Receipt Date: 20141125
  Transmission Date: 20150528
  Serious: Yes (Hospitalization)
  Sender: FDA-Public Use
  Company Number: GB-GLENMARK GENERICS INC.-2014GMK010759

PATIENT
  Age: 78 Year
  Sex: Female
  Weight: 93.2 kg

DRUGS (5)
  1. SERETIDE [Concomitant]
     Active Substance: FLUTICASONE FUROATE\SALMETEROL XINAFOATE
     Dosage: UNK, BID
  2. MONTELUKAST [Suspect]
     Active Substance: MONTELUKAST SODIUM
     Dosage: 10 MG, OD
     Route: 048
     Dates: start: 20080101, end: 20140710
  3. SALBUTAMOL [Concomitant]
     Active Substance: ALBUTEROL
     Dosage: UNK, PRN
  4. LISINOPRIL. [Concomitant]
     Active Substance: LISINOPRIL
     Dosage: 10 MG, OD
     Route: 048
     Dates: start: 20120101
  5. TIOTROPIUM [Concomitant]
     Active Substance: TIOTROPIUM
     Dosage: 18 MG, OD
     Dates: start: 20140301

REACTIONS (6)
  - Pyrexia [Recovered/Resolved]
  - Fall [Recovered/Resolved]
  - Paraesthesia [Recovering/Resolving]
  - Lower respiratory tract infection [Recovered/Resolved]
  - Allergic granulomatous angiitis [Recovering/Resolving]
  - Muscular weakness [Recovering/Resolving]

NARRATIVE: CASE EVENT DATE: 20140621
